FAERS Safety Report 10781294 (Version 1)
Quarter: 2015Q1

REPORT INFORMATION
  Report Type: Spontaneous
  Country: US (occurrence: None)
  Receive Date: 20150209
  Receipt Date: 20150209
  Transmission Date: 20150721
  Serious: Yes (Other)
  Sender: FDA-Public Use
  Company Number: None

PATIENT
  Age: 61 Year
  Sex: Female

DRUGS (1)
  1. TRAMADOL HCL 50 MG AMNEAL PHARMACEUTICAL [Suspect]
     Active Substance: TRAMADOL
     Indication: BACK PAIN
     Dosage: TAKEN  BY MOUTH
     Route: 048
     Dates: start: 20141114, end: 20141204

REACTIONS (2)
  - Diaphragmatic disorder [None]
  - Hypoaesthesia [None]

NARRATIVE: CASE EVENT DATE: 20141121
